FAERS Safety Report 16958092 (Version 1)
Quarter: 2019Q4

REPORT INFORMATION
  Report Type: Spontaneous
  Country: US (occurrence: US)
  Receive Date: 20191024
  Receipt Date: 20191024
  Transmission Date: 20200122
  Serious: No
  Sender: FDA-Public Use
  Company Number: US-PFIZER INC-2019459427

PATIENT
  Age: 65 Year
  Sex: Female

DRUGS (2)
  1. PALBOCICLIB [Suspect]
     Active Substance: PALBOCICLIB
     Indication: BREAST CANCER FEMALE
     Dosage: 100 MG, CYCLIC (DAILY, DAYS 1 THROUGH 14 EVERY 21 DAYS)
     Dates: start: 20190919
  2. FASLODEX [Suspect]
     Active Substance: FULVESTRANT
     Dosage: UNK (EVERY 4 WEEKS)

REACTIONS (1)
  - Neoplasm progression [Unknown]
